FAERS Safety Report 8046709-2 (Version None)
Quarter: 2012Q1

REPORT INFORMATION
  Report Type: 
  Country: None (occurrence: None)
  Receive Date: 20120116
  Receipt Date: 20120110
  Transmission Date: 20120608
  Serious: Yes (Hospitalization)
  Sender: FDA-Public Use
  Company Number: DK-BIOGENIDEC-2011BI039150

PATIENT
  Age: 35 Year
  Sex: Female

DRUGS (5)
  1. GABAPENTIN [Concomitant]
  2. TYSABRI [Suspect]
     Indication: MULTIPLE SCLEROSIS
     Route: 042
     Dates: start: 20110317, end: 20111107
  3. BACLOFEN [Concomitant]
     Dates: start: 20100101
  4. CALCIUM [Concomitant]
  5. VITAMIN D [Concomitant]

REACTIONS (4)
  - VAGINAL CANCER [None]
  - MULTIPLE SCLEROSIS RELAPSE [None]
  - DYSPLASIA [None]
  - ANOGENITAL WARTS [None]
